FAERS Safety Report 6843995-9 (Version None)
Quarter: 2010Q3

REPORT INFORMATION
  Report Type: 
  Country: None (occurrence: None)
  Receive Date: 20100714
  Receipt Date: 20100714
  Transmission Date: 20110219
  Serious: Yes (Hospitalization)
  Sender: FDA-Public Use
  Company Number: None

PATIENT
  Age: 94 Year
  Sex: Female
  Weight: 83.5 kg

DRUGS (12)
  1. INDAPAMIDE [Suspect]
     Indication: DIURETIC THERAPY
     Dosage: 1.25 MG DAILY PO, PRIOR TO ADMIT
     Route: 048
  2. INSULIN DETEMIR [Concomitant]
  3. WARFARIN SODIUM [Concomitant]
  4. OMEPRAZOLE [Concomitant]
  5. LEVOTHYROXINE SODIUM [Concomitant]
  6. DILTIAZEM [Concomitant]
  7. DIGOXIN [Concomitant]
  8. FERROUS SULFATE [Concomitant]
  9. SIMVASTATIN [Concomitant]
  10. TOLTERIDINE LA [Concomitant]
  11. GLYBURIDE [Concomitant]
  12. ACARBOSE [Concomitant]

REACTIONS (4)
  - ASTHENIA [None]
  - FALL [None]
  - HYPONATRAEMIA [None]
  - RENAL FAILURE CHRONIC [None]
